FAERS Safety Report 4733425-5 (Version None)
Quarter: 2005Q3

REPORT INFORMATION
  Report Type: 
  Country: None (occurrence: None)
  Receive Date: 20050729
  Receipt Date: 20050714
  Transmission Date: 20060218
  Serious: Yes (Hospitalization)
  Sender: FDA-Public Use
  Company Number: B0388242B

PATIENT
  Sex: Female

DRUGS (5)
  1. AZATHIOPRINE [Suspect]
     Dosage: 100 MG PER DAY TRANSPLACENTARY
     Route: 064
  2. SEPTRA [Suspect]
     Dosage: TRANSPLACENTARY
     Route: 064
  3. PREDNISONE [Suspect]
  4. ZINACEF [Suspect]
     Dosage: 35 MG PER DAY
  5. CALCIUM SALT (CALCIUM SALT) [Suspect]

REACTIONS (5)
  - CAESAREAN SECTION [None]
  - CONGENITAL ARTERIAL MALFORMATION [None]
  - DRUG EXPOSURE DURING PREGNANCY [None]
  - FOETAL DISTRESS SYNDROME [None]
  - SINGLE UMBILICAL ARTERY [None]
